FAERS Safety Report 16760619 (Version 1)
Quarter: 2019Q3

REPORT INFORMATION
  Report Type: Spontaneous
  Country: GB (occurrence: GB)
  Receive Date: 20190830
  Receipt Date: 20190830
  Transmission Date: 20191005
  Serious: Yes (Hospitalization)
  Sender: FDA-Public Use
  Company Number: GB-PFIZER INC-2019367057

PATIENT
  Age: 66 Year
  Sex: Female
  Weight: 76 kg

DRUGS (8)
  1. DOCETAXEL. [Suspect]
     Active Substance: DOCETAXEL
     Indication: BREAST CANCER
     Dosage: 130 MG, UNK
     Route: 042
     Dates: start: 20190214, end: 20190214
  2. PERTUZUMAB. [Suspect]
     Active Substance: PERTUZUMAB
     Indication: NEOADJUVANT THERAPY
     Dosage: 840 MG, SINGLE (FIRST DOSE)
     Route: 042
     Dates: start: 20190214, end: 20190214
  3. ONDANSETRON [Concomitant]
     Active Substance: ONDANSETRON
     Dosage: UNK
  4. TRASTUZUMAB. [Concomitant]
     Active Substance: TRASTUZUMAB
     Dosage: UNK
  5. DEXAMETHASONE. [Concomitant]
     Active Substance: DEXAMETHASONE
     Dosage: UNK
  6. PERTUZUMAB. [Suspect]
     Active Substance: PERTUZUMAB
     Dosage: 420 MG, SINGLE (SECOND DOSE)
     Route: 042
  7. PERTUZUMAB. [Suspect]
     Active Substance: PERTUZUMAB
     Dosage: 420 MG, SINGLE (THIRD DOSE)
     Route: 042
     Dates: start: 20190402
  8. CYCLOPHOSPHAMIDE. [Suspect]
     Active Substance: CYCLOPHOSPHAMIDE
     Indication: NEOADJUVANT THERAPY
     Dosage: 1000 MG, UNK
     Route: 042
     Dates: start: 20190214, end: 20190214

REACTIONS (3)
  - Abdominal pain lower [Unknown]
  - Appendicitis perforated [Recovered/Resolved]
  - Appendiceal abscess [Recovered/Resolved]

NARRATIVE: CASE EVENT DATE: 20190305
